FAERS Safety Report 10294129 (Version 2)
Quarter: 2014Q3

REPORT INFORMATION
  Report Type: Spontaneous
  Country: FR (occurrence: FR)
  Receive Date: 20140710
  Receipt Date: 20140910
  Transmission Date: 20150326
  Serious: Yes (Hospitalization)
  Sender: FDA-Public Use
  Company Number: PHHY2014FR084033

PATIENT
  Age: 42 Year
  Sex: Female

DRUGS (8)
  1. KETOPROFEN SANDOZ [Suspect]
     Active Substance: KETOPROFEN
     Indication: PAIN
     Dosage: 100 MG, BID
     Route: 048
     Dates: start: 20140613, end: 20140616
  2. ACTISKENAN [Suspect]
     Active Substance: MORPHINE SULFATE
     Dosage: 1 DF, QD
     Route: 048
  3. CONTRAMAL [Concomitant]
     Active Substance: TRAMADOL HYDROCHLORIDE
     Dosage: 1 DF, BID
     Route: 048
     Dates: start: 20140612
  4. APRANAX [Suspect]
     Active Substance: NAPROXEN
     Dosage: 550 MG, BID
     Route: 048
     Dates: start: 20140613, end: 20140614
  5. DOLIPRANE [Suspect]
     Active Substance: ACETAMINOPHEN
     Dosage: 1000 MG, TID
     Route: 048
     Dates: start: 20140613, end: 20140616
  6. INIPOMP [Suspect]
     Active Substance: PANTOPRAZOLE SODIUM
     Dosage: 20 MG, QD
     Route: 048
     Dates: start: 20140613, end: 20140616
  7. MOVICOL [Concomitant]
     Active Substance: POLYETHYLENE GLYCOL 3350\POTASSIUM CHLORIDE\SODIUM BICARBONATE\SODIUM CHLORIDE
     Dosage: 1 DF, QD
     Route: 048
     Dates: start: 20140614
  8. LOVENOX [Suspect]
     Active Substance: ENOXAPARIN SODIUM
     Dosage: 1 DF, QD
     Route: 058
     Dates: start: 20140612

REACTIONS (3)
  - Thrombocytopenia [Recovered/Resolved]
  - Erythema [Recovered/Resolved]
  - Agranulocytosis [Recovered/Resolved]

NARRATIVE: CASE EVENT DATE: 20140616
